FAERS Safety Report 7309719-6 (Version None)
Quarter: 2011Q1

REPORT INFORMATION
  Report Type: 
  Country: None (occurrence: None)
  Receive Date: 20110224
  Receipt Date: 20110218
  Transmission Date: 20110831
  Serious: Yes (Hospitalization)
  Sender: FDA-Public Use
  Company Number: US-BIOGENIDEC-2011BI006540

PATIENT
  Age: 55 Year
  Sex: Female

DRUGS (4)
  1. AVONEX [Suspect]
     Indication: MULTIPLE SCLEROSIS
     Route: 030
     Dates: start: 20060301
  2. MEDICATION [NOS] [Concomitant]
  3. AVONEX [Suspect]
     Route: 030
     Dates: start: 20021101, end: 20030801
  4. AVONEX [Suspect]
     Route: 030
     Dates: start: 20030801

REACTIONS (1)
  - HYPOTENSION [None]
